FAERS Safety Report 13629974 (Version 1)
Quarter: 2017Q2

REPORT INFORMATION
  Report Type: Spontaneous
  Country: FR (occurrence: FR)
  Receive Date: 20170608
  Receipt Date: 20170608
  Transmission Date: 20170830
  Serious: Yes (Other)
  Sender: FDA-Public Use
  Company Number: FR-BAYER-2017-102879

PATIENT
  Age: 36 Year
  Sex: Female

DRUGS (1)
  1. MIRENA [Suspect]
     Active Substance: LEVONORGESTREL
     Indication: CONTRACEPTION
     Dosage: 20 MCG/24HR, CONT
     Route: 015
     Dates: end: 20100701

REACTIONS (6)
  - Weight increased [Unknown]
  - Cervix carcinoma [Unknown]
  - Affective disorder [Unknown]
  - Ovarian cyst [Unknown]
  - Loss of libido [Unknown]
  - Amenorrhoea [Unknown]
